FAERS Safety Report 23277403 (Version 1)
Quarter: 2023Q4

REPORT INFORMATION
  Report Type: Spontaneous
  Country: US (occurrence: None)
  Receive Date: 20231207
  Receipt Date: 20231207
  Transmission Date: 20240110
  Serious: Yes (Other)
  Sender: FDA-Public Use
  Company Number: None

PATIENT
  Age: 72 Year
  Sex: Female
  Weight: 64.35 kg

DRUGS (18)
  1. EMGALITY [Suspect]
     Active Substance: GALCANEZUMAB-GNLM
     Indication: Migraine
     Dosage: OTHER QUANTITY : 2 INJECTION(S);?OTHER FREQUENCY : ONCE A MONTH;?OTHER ROUTE : SQ INJECTION;?
     Route: 050
     Dates: start: 20230803, end: 20230928
  2. ATORVASTATIN [Concomitant]
     Active Substance: ATORVASTATIN
  3. Ezetimab [Concomitant]
  4. JARDIANCE [Concomitant]
     Active Substance: EMPAGLIFLOZIN
  5. UBRELVY [Concomitant]
     Active Substance: UBROGEPANT
  6. ASPIRIN [Concomitant]
     Active Substance: ASPIRIN
  7. Esmoprozole [Concomitant]
  8. GAS-X [Concomitant]
     Active Substance: DIMETHICONE
  9. HA Relief [Concomitant]
  10. VITAMINS [Concomitant]
     Active Substance: VITAMINS
  11. VITAMIN D3 [Concomitant]
     Active Substance: CHOLECALCIFEROL
  12. IBUPROFEN [Concomitant]
     Active Substance: IBUPROFEN
  13. TYLENOL [Concomitant]
     Active Substance: ACETAMINOPHEN
  14. LIDOCAINE PATCH [Concomitant]
     Active Substance: LIDOCAINE
  15. BENGAY ARTHRITIS PAIN RELIEVING [Concomitant]
     Active Substance: MENTHOL\METHYL SALICYLATE
  16. VOLTAREN [Concomitant]
     Active Substance: DICLOFENAC SODIUM
  17. Soothe-XP oph drops [Concomitant]
  18. SYSTANE NIGHTTIME [Concomitant]
     Active Substance: MINERAL OIL\PETROLATUM

REACTIONS (11)
  - Injection site reaction [None]
  - Peripheral swelling [None]
  - Pruritus [None]
  - Headache [None]
  - Drug ineffective [None]
  - Injection site pain [None]
  - Wrong technique in product usage process [None]
  - Incorrect route of product administration [None]
  - Product label confusion [None]
  - Joint swelling [None]
  - Product preparation issue [None]

NARRATIVE: CASE EVENT DATE: 20231027
